FAERS Safety Report 4509087-9 (Version None)
Quarter: 2005Q1

REPORT INFORMATION
  Report Type: 
  Country: None (occurrence: None)
  Receive Date: 20041025
  Receipt Date: 20040723
  Transmission Date: 20050727
  Serious: Yes (Other)
  Sender: FDA-Public Use
  Company Number: US-JNJFOC-20040706463

PATIENT
  Age: 40 Year
  Sex: Female

DRUGS (11)
  1. INFLIXIMAB (INFLIXIMAB, RECOMBINANT) LYOPHILIZED POWDER [Suspect]
     Indication: RHEUMATOID ARTHRITIS
     Dosage: 400 MG, 1 IN 8 WEEK, INTRAVENOUS
     Route: 042
     Dates: start: 20010410
  2. METHOTREXATE [Concomitant]
  3. LORTAB [Concomitant]
  4. XANAX [Concomitant]
  5. PREVACID [Concomitant]
  6. TIGAN [Concomitant]
  7. PREDNISONE [Concomitant]
  8. DYAZIDE [Concomitant]
  9. SOMA [Concomitant]
  10. CELEBREX [Concomitant]
  11. BISCODYL (BIS-CHLOROETHYLAMINO METHYLBENZOIC ACID) [Concomitant]

REACTIONS (1)
  - INFUSION RELATED REACTION [None]
